FAERS Safety Report 25462720 (Version 1)
Quarter: 2025Q2

REPORT INFORMATION
  Report Type: Report from Study
  Country: DE (occurrence: DE)
  Receive Date: 20250620
  Receipt Date: 20250620
  Transmission Date: 20250717
  Serious: Yes (Death, Hospitalization, Other)
  Sender: SANDOZ
  Company Number: DE-SANDOZ-SDZ2025DE042592

PATIENT
  Sex: Female

DRUGS (2)
  1. ADALIMUMAB [Suspect]
     Active Substance: ADALIMUMAB
     Indication: Product used for unknown indication
     Dosage: 40 MG, Q2W
     Route: 065
     Dates: end: 20250106
  2. METHOTREXATE [Suspect]
     Active Substance: METHOTREXATE
     Indication: Product used for unknown indication
     Dosage: 20 MG, QW
     Route: 065
     Dates: end: 202501

REACTIONS (6)
  - Cardiac failure [Fatal]
  - Septic shock [Fatal]
  - Necrotising ulcerative gingivostomatitis [Unknown]
  - Ovarian mass [Unknown]
  - Cardiac failure [Unknown]
  - Back pain [Unknown]

NARRATIVE: CASE EVENT DATE: 20241201
